FAERS Safety Report 5727381-0 (Version None)
Quarter: 2008Q2

REPORT INFORMATION
  Report Type: 
  Country: None (occurrence: None)
  Receive Date: 20080505
  Receipt Date: 20080415
  Transmission Date: 20081010
  Serious: Yes (Hospitalization)
  Sender: FDA-Public Use
  Company Number: US-AMGEN-US275079

PATIENT
  Sex: Male

DRUGS (7)
  1. PROCRIT [Suspect]
     Indication: RENAL FAILURE CHRONIC
     Dates: end: 20070901
  2. PREDNISONE [Concomitant]
     Dates: start: 20071001
  3. MYFORTIC [Concomitant]
     Dates: start: 20071001
  4. PROGRAF [Concomitant]
     Dates: start: 20071001
  5. VALCYTET [Concomitant]
     Dates: start: 20071001
  6. FLOMAX [Concomitant]
     Dates: start: 20071001
  7. BACTRIM [Concomitant]
     Dates: start: 20071001

REACTIONS (2)
  - APLASIA PURE RED CELL [None]
  - HOSPITALISATION [None]
